FAERS Safety Report 16456648 (Version 1)
Quarter: 2019Q3

REPORT INFORMATION
  Report Type: Spontaneous
  Country: US (occurrence: US)
  Receive Date: 20190619
  Receipt Date: 20190619
  Transmission Date: 20191004
  Serious: Yes (Other)
  Sender: FDA-Public Use
  Company Number: None

PATIENT
  Age: 80 Year
  Sex: Male
  Weight: 79.2 kg

DRUGS (17)
  1. CELEXA [Concomitant]
     Active Substance: CITALOPRAM HYDROBROMIDE
  2. MULYI-VITAMIN [Concomitant]
  3. OLMASARTAN MEDOXOMIL [Concomitant]
  4. ALBUTEROL. [Concomitant]
     Active Substance: ALBUTEROL
  5. COREG [Concomitant]
     Active Substance: CARVEDILOL
  6. CPAP [Concomitant]
     Active Substance: DEVICE
  7. KCL [Concomitant]
     Active Substance: POTASSIUM CHLORIDE
  8. LORATADINE. [Concomitant]
     Active Substance: LORATADINE
  9. SPIRONOLACTONE. [Concomitant]
     Active Substance: SPIRONOLACTONE
  10. 24 HOUR ALLERGY NASAL [Suspect]
     Active Substance: FLUTICASONE PROPIONATE
     Indication: SEASONAL ALLERGY
     Dosage: ?          OTHER STRENGTH:DON^T KNOW;QUANTITY:1 SPRAY(S);OTHER ROUTE:NASAL INHALATION?
     Route: 055
     Dates: start: 20190606, end: 20190615
  11. FLUTICASONE. [Suspect]
     Active Substance: FLUTICASONE
     Indication: HYPERSENSITIVITY
     Dosage: ?          QUANTITY:2 SPRAY(S);?
     Route: 055
  12. GUAIFENSIN [Concomitant]
     Active Substance: GUAIFENESIN
  13. XARELTO [Concomitant]
     Active Substance: RIVAROXABAN
  14. VITAMIN B [Concomitant]
     Active Substance: VITAMIN B
  15. ASPIRIN. [Concomitant]
     Active Substance: ASPIRIN
  16. FUROSEMIDE. [Concomitant]
     Active Substance: FUROSEMIDE
  17. SIMVASTATIN. [Concomitant]
     Active Substance: SIMVASTATIN

REACTIONS (4)
  - Aphonia [None]
  - Product substitution issue [None]
  - Dysphonia [None]
  - Nasal discomfort [None]

NARRATIVE: CASE EVENT DATE: 20190606
